FAERS Safety Report 8834651 (Version 1)
Quarter: 2012Q4

REPORT INFORMATION
  Report Type: 
  Country: US (occurrence: US)
  Receive Date: 20121010
  Receipt Date: 20121010
  Transmission Date: 20130627
  Serious: Yes (Other)
  Sender: FDA-Public Use
  Company Number: US-BRISTOL-MYERS SQUIBB COMPANY-17010026

PATIENT
  Age: 50 Year
  Sex: Female
  Weight: 45 kg

DRUGS (4)
  1. ABATACEPT SUBQ INJECTION 125MG/ML [Suspect]
     Indication: RHEUMATOID ARTHRITIS
     Dosage: Last inj:27Sep12
     Route: 058
  2. AUGMENTIN [Concomitant]
  3. HYDROCODONE [Concomitant]
  4. XANAX [Concomitant]

REACTIONS (1)
  - Psychotic disorder [Unknown]
